FAERS Safety Report 6929174-5 (Version None)
Quarter: 2010Q3

REPORT INFORMATION
  Report Type: 
  Country: None (occurrence: None)
  Receive Date: 20100812
  Receipt Date: 20100726
  Transmission Date: 20110219
  Serious: Yes (Hospitalization)
  Sender: FDA-Public Use
  Company Number: 2010VX001167

PATIENT
  Age: 75 Year
  Sex: Female

DRUGS (10)
  1. PYRIDOSTIGMINE BROMIDE [Suspect]
     Indication: MYASTHENIA GRAVIS
     Dosage: 160 MG; QD; PO, 420 MG; QD; PO, 450 MG; QD; PO, 240 MG; QD; PO
     Route: 048
  2. AZATHIOPRINE [Suspect]
     Indication: MYASTHENIA GRAVIS
     Dosage: 50 MG; QD, 150 MG; QD
  3. PREDNISOLONE [Suspect]
     Indication: MYASTHENIA GRAVIS
     Dosage: 100 MG; QD
  4. SIMVASTATIN [Concomitant]
  5. ASPIRIN [Concomitant]
  6. PANTOPRAZOLE [Concomitant]
  7. ENALAPRIL MALEATE [Concomitant]
  8. HYDROCHLOROTHIAZIDE [Concomitant]
  9. CALCIUM WITH VITAMIN D [Concomitant]
  10. HEPARIN [Concomitant]

REACTIONS (4)
  - FISTULA [None]
  - MYASTHENIA GRAVIS CRISIS [None]
  - OESOPHAGEAL CANDIDIASIS [None]
  - OESOPHAGEAL PERFORATION [None]
